FAERS Safety Report 9485243 (Version 1)
Quarter: 2013Q3

REPORT INFORMATION
  Report Type: Spontaneous
  Country: US (occurrence: US)
  Receive Date: 20130828
  Receipt Date: 20130828
  Transmission Date: 20140515
  Serious: Yes (Hospitalization)
  Sender: FDA-Public Use
  Company Number: US-GILEAD-2013-0082121

PATIENT
  Sex: Female

DRUGS (1)
  1. LETAIRIS [Suspect]
     Indication: PRODUCT USED FOR UNKNOWN INDICATION
     Dosage: 5 MG, QD
     Dates: start: 20080328

REACTIONS (5)
  - Coronary artery disease [Unknown]
  - Nephropathy [Unknown]
  - Syncope [Unknown]
  - International normalised ratio increased [Unknown]
  - Pulmonary hypertension [Unknown]
